FAERS Safety Report 8256676-4 (Version None)
Quarter: 2012Q2

REPORT INFORMATION
  Report Type: 
  Country: None (occurrence: None)
  Receive Date: 20120403
  Receipt Date: 20120327
  Transmission Date: 20120825
  Serious: Yes (Hospitalization, Other)
  Sender: FDA-Public Use
  Company Number: DE-B.I. PHARMACEUTICALS,INC./RIDGEFIELD-2012-DE-00672DE

PATIENT
  Sex: Female
  Weight: 50 kg

DRUGS (5)
  1. PRADAXA [Suspect]
     Indication: ATRIAL FIBRILLATION
     Dosage: 220 MG
     Dates: start: 20111124, end: 20111215
  2. PRADAXA [Suspect]
  3. PANTOPRAZOL 20 [Concomitant]
     Indication: GASTRITIS
     Dosage: 1 ANZ
  4. KEPPRA 500 [Concomitant]
     Indication: EPILEPSY
     Dosage: 6 ANZ
  5. BISOPROLOL 5 [Concomitant]
     Indication: TACHYCARDIA
     Dosage: 1.5 ANZ

REACTIONS (7)
  - HEMIPARESIS [None]
  - DYSPHAGIA [None]
  - CEREBROVASCULAR ACCIDENT [None]
  - HYPOVOLAEMIA [None]
  - HYPOKALAEMIA [None]
  - BACTERIAL DISEASE CARRIER [None]
  - MUSCLE SPASMS [None]
